FAERS Safety Report 20222938 (Version 1)
Quarter: 2021Q4

REPORT INFORMATION
  Report Type: Spontaneous
  Country: US (occurrence: US)
  Receive Date: 20211223
  Receipt Date: 20211223
  Transmission Date: 20220303
  Serious: Yes (Other)
  Sender: FDA-Public Use
  Company Number: US-BRISTOL-MYERS SQUIBB COMPANY-BMS-2021-139446

PATIENT
  Age: 72 Year
  Sex: Male
  Weight: 99.773 kg

DRUGS (1)
  1. ELIQUIS [Suspect]
     Active Substance: APIXABAN
     Indication: Cerebrovascular accident prophylaxis
     Dosage: UNK UNK, BID
     Route: 048
     Dates: start: 201902

REACTIONS (2)
  - Ocular neoplasm [Unknown]
  - Cataract [Unknown]

NARRATIVE: CASE EVENT DATE: 20210101
